FAERS Safety Report 5003853-1 (Version None)
Quarter: 2006Q2

REPORT INFORMATION
  Report Type: 
  Country: None (occurrence: None)
  Receive Date: 20060515
  Receipt Date: 20060428
  Transmission Date: 20061013
  Serious: Yes (Hospitalization)
  Sender: FDA-Public Use
  Company Number: 2006P1000292

PATIENT
  Age: 42 Year
  Sex: Male
  Weight: 80 kg

DRUGS (8)
  1. RETEPLASE (RETEPLASE) [Suspect]
     Indication: ACUTE MYOCARDIAL INFARCTION
     Dosage: IV
     Route: 042
     Dates: start: 20050604, end: 20050604
  2. REOPRO [Suspect]
     Indication: ACUTE MYOCARDIAL INFARCTION
     Dosage: IV
     Route: 042
     Dates: start: 20050604, end: 20050604
  3. BISOPROLOL [Concomitant]
  4. CILAZAPRIL [Concomitant]
  5. TICLOPIDINE [Concomitant]
  6. ACARD [Concomitant]
  7. SIMVASTATIN [Concomitant]
  8. TIANEPTINE [Concomitant]

REACTIONS (1)
  - CORONARY ARTERY DISEASE [None]
